FAERS Safety Report 11854777 (Version 1)
Quarter: 2015Q4

REPORT INFORMATION
  Report Type: Spontaneous
  Country: US (occurrence: US)
  Receive Date: 20151221
  Receipt Date: 20151221
  Transmission Date: 20160305
  Serious: No
  Sender: FDA-Public Use
  Company Number: US-ASTRAZENECA-2015SF26478

PATIENT
  Age: 687 Month
  Sex: Male
  Weight: 100.7 kg

DRUGS (4)
  1. METFORMIN [Concomitant]
     Active Substance: METFORMIN HYDROCHLORIDE
  2. FENOFIBRATE. [Concomitant]
     Active Substance: FENOFIBRATE
  3. GLIPIZIDE. [Concomitant]
     Active Substance: GLIPIZIDE
  4. BYDUREON [Suspect]
     Active Substance: EXENATIDE
     Indication: TYPE 2 DIABETES MELLITUS
     Route: 058

REACTIONS (3)
  - Injection site infection [Recovering/Resolving]
  - Injection site mass [Unknown]
  - Weight decreased [Unknown]

NARRATIVE: CASE EVENT DATE: 201511
